FAERS Safety Report 9990615 (Version 1)
Quarter: 2014Q1

REPORT INFORMATION
  Report Type: Spontaneous
  Country: US (occurrence: None)
  Receive Date: 20140307
  Receipt Date: 20140307
  Transmission Date: 20141002
  Serious: Yes (Death)
  Sender: FDA-Public Use
  Company Number: None

PATIENT
  Age: 59 Year
  Sex: Male

DRUGS (2)
  1. GAMMAGARD [Suspect]
     Indication: POLYNEUROPATHY
     Dosage: 25GM(250ML) DAILY FOR 4 DAYS EVERY 4 WEEKS IV
     Route: 042
     Dates: start: 201401, end: 201402
  2. GAMMAGARD [Suspect]
     Indication: ANKYLOSING SPONDYLITIS
     Dosage: 25GM(250ML) DAILY FOR 4 DAYS EVERY 4 WEEKS IV
     Route: 042
     Dates: start: 201401, end: 201402

REACTIONS (3)
  - Coronary artery disease [None]
  - Ankylosing spondylitis [None]
  - Arrhythmia [None]
